FAERS Safety Report 10709607 (Version 1)
Quarter: 2015Q1

REPORT INFORMATION
  Report Type: Spontaneous
  Country: US (occurrence: US)
  Receive Date: 20150114
  Receipt Date: 20150114
  Transmission Date: 20150721
  Serious: No
  Sender: FDA-Public Use
  Company Number: US-BAYER-2015-004876

PATIENT
  Age: 58 Year
  Sex: Female
  Weight: 64 kg

DRUGS (4)
  1. VITAMIN B12 [COBAMAMIDE] [Concomitant]
  2. CENTRUM [VIT C,VIT H,B5,B12,D2,FE+,B3,B6,RETINOL,B2,B1 HCL,VIT E] [Concomitant]
  3. ALEVE [Suspect]
     Active Substance: NAPROXEN SODIUM
     Indication: ANALGESIC THERAPY
     Dosage: 4 DF, A DAY
     Route: 048
  4. ALEVE [Suspect]
     Active Substance: NAPROXEN SODIUM
     Indication: ANALGESIC THERAPY
     Dosage: 1-2 DF, PRN
     Route: 048
     Dates: start: 201308

REACTIONS (2)
  - Extra dose administered [Unknown]
  - Incorrect drug administration duration [Unknown]
